FAERS Safety Report 9688196 (Version 1)
Quarter: 2013Q4

REPORT INFORMATION
  Report Type: Spontaneous
  Country: US (occurrence: US)
  Receive Date: 20131114
  Receipt Date: 20131114
  Transmission Date: 20140711
  Serious: Yes (Death, Other)
  Sender: FDA-Public Use
  Company Number: US-SA-2013SA116879

PATIENT
  Age: 51 Year
  Sex: Female
  Weight: 133.6 kg

DRUGS (14)
  1. LANTUS [Suspect]
     Route: 058
  2. METFORMIN [Concomitant]
     Dates: start: 20130308
  3. INSULIN ASPART [Concomitant]
     Dates: start: 20130308
  4. THIAZIDES [Concomitant]
  5. ALL OTHER THERAPEUTIC PRODUCTS [Concomitant]
  6. BETA BLOCKING AGENTS [Concomitant]
  7. DRUG USED IN DIABETES [Concomitant]
  8. ACE INHIBITOR NOS [Concomitant]
  9. ALL OTHER THERAPEUTIC PRODUCTS [Concomitant]
  10. ASA [Concomitant]
  11. LIDOCAINE [Concomitant]
  12. MAALOX [Concomitant]
  13. RANITIDINE [Concomitant]
  14. PSYLLIUM [Concomitant]

REACTIONS (2)
  - Death [Fatal]
  - Adenocarcinoma pancreas [Unknown]
